FAERS Safety Report 4283965-0 (Version None)
Quarter: 2004Q1

REPORT INFORMATION
  Report Type: 
  Country: None (occurrence: None)
  Receive Date: 20040121
  Receipt Date: 20021203
  Transmission Date: 20041129
  Serious: Yes (Other)
  Sender: FDA-Public Use
  Company Number: A03200201485

PATIENT
  Age: 74 Year
  Sex: Male

DRUGS (9)
  1. PLAVIX [Suspect]
     Indication: STENT PLACEMENT
     Dosage: ORAL
     Route: 048
     Dates: start: 20000101, end: 20000101
  2. ROFECOXIB [Concomitant]
  3. METOPROLOL TARTRATE [Concomitant]
  4. COLESEVELAM HYDROCHLORIDE [Concomitant]
  5. PRAVASTATIN SODIUM [Concomitant]
  6. FUROSEMIDE [Concomitant]
  7. ACETYLSALICYLIC ACID SRT [Concomitant]
  8. LISINOPRIL [Concomitant]
  9. INSULIN [Concomitant]

REACTIONS (1)
  - HALLUCINATION, VISUAL [None]
